FAERS Safety Report 10077162 (Version 1)
Quarter: 2014Q2

REPORT INFORMATION
  Report Type: Spontaneous
  Country: FR (occurrence: FR)
  Receive Date: 20140414
  Receipt Date: 20140414
  Transmission Date: 20141212
  Serious: Yes (Death, Hospitalization, Other)
  Sender: FDA-Public Use
  Company Number: PHHY2014FR040891

PATIENT
  Age: 65 Year
  Sex: 0

DRUGS (7)
  1. GENTAMICIN [Suspect]
     Indication: ENDOCARDITIS BACTERIAL
     Dosage: 200 MG, QD- FOR 4 DAYS
  2. GENTAMICIN [Suspect]
     Indication: PYREXIA
     Dosage: 350 MG, QD- THEREAFTER
  3. VANCOMYCIN [Suspect]
     Indication: ENDOCARDITIS BACTERIAL
     Dosage: 2 G, QD
  4. AMOXICILLIN [Suspect]
     Indication: ENDOCARDITIS BACTERIAL
     Dosage: 6 G, QD FOR 5 DAYS
     Route: 042
  5. AMOXICILLIN [Suspect]
     Dosage: 12 G, QD FOR 5 DAYS
     Route: 042
  6. PIPERACILLIN [Suspect]
     Indication: ENDOCARDITIS BACTERIAL
  7. OFLOXACIN SANDOZ [Suspect]

REACTIONS (8)
  - Pulmonary embolism [Fatal]
  - Dyspnoea [Fatal]
  - Device related infection [Unknown]
  - Bacillus infection [Unknown]
  - Pyrexia [Recovered/Resolved]
  - Endocarditis bacterial [Unknown]
  - Renal failure acute [Recovering/Resolving]
  - Drug ineffective [Unknown]
